FAERS Safety Report 8840156 (Version 2)
Quarter: 2012Q4

REPORT INFORMATION
  Report Type: 
  Country: JP (occurrence: JP)
  Receive Date: 20121015
  Receipt Date: 20121029
  Transmission Date: 20130627
  Serious: Yes (Other)
  Sender: FDA-Public Use
  Company Number: JP-OTSUKA-JP-2012-16251

PATIENT
  Age: 68 None
  Sex: Female
  Weight: 57 kg

DRUGS (2)
  1. PLETAAL [Suspect]
     Indication: BRADYCARDIA
     Dosage: 100 Mg milligram(s), daily dose
     Route: 048
     Dates: start: 201112
  2. PLETAAL [Suspect]
     Dosage: 50 Mg milligram(s), qd
     Route: 048
     Dates: end: 20120118

REACTIONS (5)
  - Bradycardia [Recovering/Resolving]
  - Ventricular tachycardia [Recovered/Resolved]
  - Supraventricular extrasystoles [Unknown]
  - Headache [Recovered/Resolved]
  - Palpitations [Recovered/Resolved]
